FAERS Safety Report 11995038 (Version 1)
Quarter: 2016Q1

REPORT INFORMATION
  Report Type: Spontaneous
  Country: US (occurrence: US)
  Receive Date: 20160203
  Receipt Date: 20160203
  Transmission Date: 20160526
  Serious: No
  Sender: FDA-Public Use
  Company Number: US-UCBSA-2015030126

PATIENT
  Age: 28 Year
  Sex: Male
  Weight: 73.48 kg

DRUGS (1)
  1. KEPPRA XR [Suspect]
     Active Substance: LEVETIRACETAM
     Indication: SEIZURE
     Dosage: 500 MG HALF A TABLET TWICE DAILY INSTEAD OF A FULL TABLET AT NIGHT
     Route: 048

REACTIONS (4)
  - Seizure [Recovered/Resolved]
  - Inappropriate schedule of drug administration [Unknown]
  - Insomnia [Recovered/Resolved]
  - Off label use [Unknown]

NARRATIVE: CASE EVENT DATE: 20150411
